FAERS Safety Report 8062830 (Version 2)
Quarter: 2012Q4

REPORT INFORMATION
  Report Type: 
  Country: DE (occurrence: DE)
  Receive Date: 20110801
  Receipt Date: 20121011
  Transmission Date: 20130627
  Serious: Yes (Other)
  Sender: FDA-Public Use
  Company Number: DE-UCBSA-037586

PATIENT
  Age: 26 Year
  Sex: Female

DRUGS (2)
  1. LEVETIRACETAM [Suspect]
     Indication: EPILEPSY
     Dosage: 3000 MG DAILY
     Dates: start: 2003
  2. VALPROATE [Suspect]
     Indication: EPILEPSY
     Dosage: 1300 MG DAILY
     Dates: end: 2005

REACTIONS (2)
  - Impulse-control disorder [Recovered/Resolved]
  - Grand mal convulsion [Recovered/Resolved]
